FAERS Safety Report 11876824 (Version 1)
Quarter: 2015Q4

REPORT INFORMATION
  Report Type: Spontaneous
  Country: FR (occurrence: FR)
  Receive Date: 20151229
  Receipt Date: 20151229
  Transmission Date: 20160305
  Serious: Yes (Hospitalization)
  Sender: FDA-Public Use
  Company Number: FR-PFIZER INC-2015466554

PATIENT
  Age: 40 Year
  Sex: Female

DRUGS (2)
  1. ZITHROMAX [Suspect]
     Active Substance: AZITHROMYCIN DIHYDRATE
     Dosage: UNK, SINGLE
     Route: 048
     Dates: start: 20151027, end: 20151027
  2. ZINNAT [Suspect]
     Active Substance: CEFUROXIME AXETIL
     Dosage: UNK, SINGLE
     Route: 048
     Dates: start: 20151027, end: 20151027

REACTIONS (7)
  - Pharyngeal oedema [Recovered/Resolved]
  - Hypotension [Recovered/Resolved]
  - Pyrexia [Recovered/Resolved]
  - Rash [Recovered/Resolved]
  - Cough [Recovered/Resolved]
  - Wheezing [Recovered/Resolved]
  - Chills [Recovered/Resolved]

NARRATIVE: CASE EVENT DATE: 20151027
